FAERS Safety Report 12122512 (Version 3)
Quarter: 2016Q1

REPORT INFORMATION
  Report Type: Report from Study
  Country: US (occurrence: US)
  Receive Date: 20160226
  Receipt Date: 20160329
  Transmission Date: 20160526
  Serious: Yes (Hospitalization)
  Sender: FDA-Public Use
  Company Number: US-BIOGEN-2016BI00194241

PATIENT
  Age: 33 Year
  Sex: Female

DRUGS (1)
  1. PLEGRIDY [Suspect]
     Active Substance: PEGINTERFERON BETA-1A
     Indication: MULTIPLE SCLEROSIS
     Route: 058
     Dates: start: 20160129, end: 20160212

REACTIONS (6)
  - Back pain [Unknown]
  - Ovarian cyst [Unknown]
  - Underdose [Unknown]
  - Lymphadenopathy [Not Recovered/Not Resolved]
  - Inguinal mass [Not Recovered/Not Resolved]
  - Localised intraabdominal fluid collection [Recovered/Resolved]

NARRATIVE: CASE EVENT DATE: 20160212
